FAERS Safety Report 4632263-1 (Version None)
Quarter: 2005Q2

REPORT INFORMATION
  Report Type: 
  Country: None (occurrence: None)
  Receive Date: 20050411
  Receipt Date: 20050316
  Transmission Date: 20051028
  Serious: Yes (Other)
  Sender: FDA-Public Use
  Company Number: NO-ROCHE-398996

PATIENT
  Age: 29 Year
  Sex: Female

DRUGS (2)
  1. LARIAM [Suspect]
     Indication: MALARIA PROPHYLAXIS
     Dosage: TOTAL OF 7-8 250 MG TABLETS WERE TAKEN
     Route: 048
     Dates: start: 20050115, end: 20050115
  2. TRIPHASIL-21 [Concomitant]
     Indication: CONTRACEPTION
     Route: 048

REACTIONS (4)
  - ABORTION SPONTANEOUS [None]
  - DRUG EXPOSURE DURING PREGNANCY [None]
  - ULTRASOUND ANTENATAL SCREEN ABNORMAL [None]
  - VAGINAL HAEMORRHAGE [None]
